FAERS Safety Report 20137132 (Version 9)
Quarter: 2022Q4

REPORT INFORMATION
  Report Type: Report from Study
  Country: JP (occurrence: None)
  Receive Date: 20211201
  Receipt Date: 20221202
  Transmission Date: 20230112
  Serious: Yes (Hospitalization)
  Sender: FDA-Public Use
  Company Number: 2021A846200

PATIENT
  Age: 66 Year
  Sex: Male

DRUGS (78)
  1. DURVALUMAB [Suspect]
     Active Substance: DURVALUMAB
     Indication: Oesophageal squamous cell carcinoma
     Route: 042
     Dates: start: 20211006, end: 20211006
  2. DURVALUMAB [Suspect]
     Active Substance: DURVALUMAB
     Indication: Oesophageal squamous cell carcinoma
     Route: 042
     Dates: start: 20211105, end: 20211105
  3. CISPLATIN [Suspect]
     Active Substance: CISPLATIN
     Indication: Oesophageal squamous cell carcinoma
     Route: 042
     Dates: start: 20211006, end: 20211006
  4. CISPLATIN [Suspect]
     Active Substance: CISPLATIN
     Indication: Oesophageal squamous cell carcinoma
     Route: 042
     Dates: start: 20211109, end: 20211109
  5. FLUOROURACIL [Suspect]
     Active Substance: FLUOROURACIL
     Indication: Oesophageal squamous cell carcinoma
     Route: 042
     Dates: start: 20211006, end: 20211010
  6. FLUOROURACIL [Suspect]
     Active Substance: FLUOROURACIL
     Indication: Oesophageal squamous cell carcinoma
     Route: 042
     Dates: start: 20211109, end: 20211113
  7. TRAVOPROST [Concomitant]
     Active Substance: TRAVOPROST
     Indication: Glaucoma
     Route: 047
     Dates: start: 20201023
  8. ROSUVASTATIN TABLETS 5MG^TOWA^ [Concomitant]
     Indication: Dyslipidaemia
     Route: 048
     Dates: start: 20200820
  9. ILUAMIX COMBINATION TABLETS LD^TOWA^ [Concomitant]
     Indication: Hypertension
     Route: 048
     Dates: start: 20201002
  10. AMLODIPINE OD TABLETS 5MG^TOWA^ [Concomitant]
     Indication: Hypertension
     Route: 048
     Dates: start: 20201002
  11. LANSOPRAZOLE [Concomitant]
     Active Substance: LANSOPRAZOLE
     Indication: Prophylaxis against gastrointestinal ulcer
     Route: 048
     Dates: start: 20210929
  12. SOLULACT D [Concomitant]
     Indication: Enteral nutrition
     Route: 042
     Dates: start: 20210928, end: 20211001
  13. SOLULACT D [Concomitant]
     Indication: Febrile neutropenia
     Route: 042
     Dates: start: 20210928, end: 20211001
  14. SOLULACT D [Concomitant]
     Indication: Prophylaxis
     Route: 042
     Dates: start: 20210928, end: 20211001
  15. SOLULACT D [Concomitant]
     Indication: Enteral nutrition
     Route: 042
     Dates: start: 20220203, end: 20220210
  16. SOLULACT D [Concomitant]
     Indication: Febrile neutropenia
     Route: 042
     Dates: start: 20220203, end: 20220210
  17. SOLULACT D [Concomitant]
     Indication: Prophylaxis
     Route: 042
     Dates: start: 20220203, end: 20220210
  18. SOLULACT D [Concomitant]
     Indication: Enteral nutrition
     Route: 042
     Dates: start: 20220211, end: 20220214
  19. SOLULACT D [Concomitant]
     Indication: Febrile neutropenia
     Route: 042
     Dates: start: 20220211, end: 20220214
  20. SOLULACT D [Concomitant]
     Indication: Prophylaxis
     Route: 042
     Dates: start: 20220211, end: 20220214
  21. CARBAZOCHROME SODIUM SULFONATE [Concomitant]
     Active Substance: CARBAZOCHROME SODIUM SULFONATE
     Indication: Enteral nutrition
     Route: 042
     Dates: start: 20210928, end: 20211001
  22. TRANEXAMIC ACID [Concomitant]
     Active Substance: TRANEXAMIC ACID
     Indication: Enteral nutrition
     Route: 042
     Dates: start: 20210928, end: 20211001
  23. PETHIDINE HYDROCHLORIDE INJECTION 35MG. [Concomitant]
     Indication: Endoscopy upper gastrointestinal tract
     Dosage: 35.0MG ONCE/SINGLE ADMINISTRATION
     Route: 042
     Dates: start: 20210928, end: 20210928
  24. SODIUM CHLORIDE [Concomitant]
     Active Substance: SODIUM CHLORIDE
     Indication: Nutritional supplementation
     Dosage: 1.0G AS REQUIRED
     Route: 048
     Dates: start: 20210930
  25. RACOL-NF LIQUID FOR ENTERAL USE [Concomitant]
     Indication: Nutritional supplementation
     Dosage: 400.0ML AS REQUIRED
     Route: 048
     Dates: start: 20210930
  26. OLANZAPINE [Concomitant]
     Active Substance: OLANZAPINE
     Indication: Prophylaxis of nausea and vomiting
     Route: 048
     Dates: start: 20211006, end: 20211009
  27. SODIUM GUALENATE MONOHYDRATE [Concomitant]
     Active Substance: SODIUM GUALENATE MONOHYDRATE
     Dosage: 4.0MG AS REQUIRED
     Route: 002
     Dates: start: 20211006, end: 20211013
  28. ELIQUIS [Concomitant]
     Active Substance: APIXABAN
     Indication: Atrial fibrillation
     Route: 048
     Dates: start: 20211008, end: 20211010
  29. MAGNESIUM OXIDE [Concomitant]
     Active Substance: MAGNESIUM OXIDE
     Indication: Constipation
     Route: 048
     Dates: start: 20211010, end: 20211012
  30. POTASSIUM L-ASPARATE [Concomitant]
     Indication: Premedication
     Route: 042
     Dates: start: 20211006, end: 20211109
  31. SODIUM SULFATE/MAGNESIUM SULFATE [Concomitant]
     Indication: Premedication
     Route: 042
     Dates: start: 20211006, end: 20211109
  32. FOSAPREPITANT [Concomitant]
     Active Substance: FOSAPREPITANT
     Indication: Premedication
     Route: 042
     Dates: start: 20211006, end: 20211109
  33. PALONOSETRON HYDROCHLORIDE [Concomitant]
     Active Substance: PALONOSETRON HYDROCHLORIDE
     Indication: Premedication
     Route: 042
     Dates: start: 20211006, end: 20211109
  34. DEXAMETHASONE SODIUM PHOSPHATE [Concomitant]
     Active Substance: DEXAMETHASONE SODIUM PHOSPHATE
     Indication: Premedication
     Route: 042
     Dates: start: 20211006, end: 20211112
  35. DEXAMETHASONE SODIUM PHOSPHATE [Concomitant]
     Active Substance: DEXAMETHASONE SODIUM PHOSPHATE
     Indication: Premedication
     Route: 042
     Dates: start: 20211007, end: 20211112
  36. FUROSEMIDE [Concomitant]
     Active Substance: FUROSEMIDE
     Indication: Premedication
     Route: 042
     Dates: start: 20211006, end: 20211109
  37. FUROSEMIDE [Concomitant]
     Active Substance: FUROSEMIDE
     Indication: Atrial fibrillation
     Route: 042
     Dates: start: 20211006, end: 20211109
  38. FUROSEMIDE [Concomitant]
     Active Substance: FUROSEMIDE
     Indication: Premedication
     Route: 042
     Dates: start: 20211009, end: 20211011
  39. FUROSEMIDE [Concomitant]
     Active Substance: FUROSEMIDE
     Indication: Atrial fibrillation
     Route: 042
     Dates: start: 20211009, end: 20211011
  40. DISOPYRAMIDE [Concomitant]
     Active Substance: DISOPYRAMIDE
     Indication: Atrial fibrillation
     Dosage: 30.0MG ONCE/SINGLE ADMINISTRATION
     Route: 042
     Dates: start: 20211011, end: 20211011
  41. LACTEC INJECTION [Concomitant]
     Indication: Blood creatinine increased
     Dosage: 1000.0ML ONCE/SINGLE ADMINISTRATION
     Route: 042
     Dates: start: 20211013, end: 20211013
  42. LACTEC INJECTION [Concomitant]
     Indication: Oesophageal fistula
     Dosage: 1000.0ML ONCE/SINGLE ADMINISTRATION
     Route: 042
     Dates: start: 20211013, end: 20211013
  43. LACTEC INJECTION [Concomitant]
     Indication: Blood creatinine increased
     Dosage: 500.0ML ONCE/SINGLE ADMINISTRATION
     Route: 042
     Dates: start: 20211015, end: 20211015
  44. LACTEC INJECTION [Concomitant]
     Indication: Oesophageal fistula
     Dosage: 500.0ML ONCE/SINGLE ADMINISTRATION
     Route: 042
     Dates: start: 20211015, end: 20211015
  45. LACTEC INJECTION [Concomitant]
     Indication: Blood creatinine increased
     Dosage: 500.0ML ONCE/SINGLE ADMINISTRATION
     Route: 042
     Dates: start: 20211121, end: 20211124
  46. LACTEC INJECTION [Concomitant]
     Indication: Oesophageal fistula
     Dosage: 500.0ML ONCE/SINGLE ADMINISTRATION
     Route: 042
     Dates: start: 20211121, end: 20211124
  47. NEW LECICARBON SUPP [Concomitant]
     Indication: Constipation
     Route: 054
     Dates: start: 20211009, end: 20211012
  48. SENNOSIDES [Concomitant]
     Active Substance: SENNOSIDES
     Indication: Constipation
     Dosage: 24.0MG ONCE/SINGLE ADMINISTRATION
     Route: 048
     Dates: start: 20211011, end: 20211011
  49. GLYCERIN ENEMA [Concomitant]
     Indication: Constipation
     Dosage: 110.0ML ONCE/SINGLE ADMINISTRATION
     Route: 054
     Dates: start: 20211010, end: 20211010
  50. GLYCERIN ENEMA [Concomitant]
     Indication: Constipation
     Dosage: 120.0ML ONCE/SINGLE ADMINISTRATION
     Route: 054
     Dates: start: 20220114, end: 20220114
  51. CALONAL [Concomitant]
     Active Substance: ACETAMINOPHEN
     Indication: Oesophagitis
     Route: 048
     Dates: start: 20211020
  52. CALONAL [Concomitant]
     Active Substance: ACETAMINOPHEN
     Indication: Febrile neutropenia
     Route: 048
     Dates: start: 20211020
  53. CALONAL [Concomitant]
     Active Substance: ACETAMINOPHEN
     Indication: Oesophagitis
     Route: 048
     Dates: start: 20220206, end: 20220206
  54. CALONAL [Concomitant]
     Active Substance: ACETAMINOPHEN
     Indication: Febrile neutropenia
     Route: 048
     Dates: start: 20220206, end: 20220206
  55. MORPHINE SULFATE [Concomitant]
     Active Substance: MORPHINE SULFATE
     Indication: Oesophagitis
     Route: 048
     Dates: start: 20211013
  56. SYMPROIC TABLETS [Concomitant]
     Indication: Constipation
     Route: 048
     Dates: start: 20211013
  57. TARLIGE TABLETS [Concomitant]
     Indication: Oesophagitis
     Route: 048
     Dates: start: 20211109
  58. GLACTIVE TABLETS [Concomitant]
     Indication: Diabetes mellitus
     Route: 048
     Dates: start: 20211113, end: 20211121
  59. MORPHINE HYDROCHLORIDE INJECTION [Concomitant]
     Indication: Oesophageal fistula
     Route: 042
     Dates: start: 20211121, end: 20211125
  60. MORPHINE HYDROCHLORIDE INJECTION [Concomitant]
     Indication: Oesophageal fistula
     Route: 042
     Dates: start: 20211130, end: 20211213
  61. HYDROXYZINE HYDROCHLORIDE [Concomitant]
     Active Substance: HYDROXYZINE HYDROCHLORIDE
     Indication: Insomnia
     Route: 042
     Dates: start: 20211121, end: 20211121
  62. OMEPRAL INJECTION20 [Concomitant]
     Indication: Prophylaxis against gastrointestinal ulcer
     Route: 042
     Dates: start: 20211130, end: 20211207
  63. FILGRASTIM [Concomitant]
     Active Substance: FILGRASTIM
     Indication: Febrile neutropenia
     Dosage: 75UG/INHAL DAILY
     Route: 042
     Dates: start: 20220203, end: 20220209
  64. CALONAL FINE GRAN [Concomitant]
     Indication: Febrile neutropenia
     Route: 051
     Dates: start: 20220205, end: 20220210
  65. CALONAL FINE GRAN [Concomitant]
     Indication: Prophylaxis
     Route: 051
     Dates: start: 20220205, end: 20220210
  66. CALONAL FINE GRAN [Concomitant]
     Indication: Febrile neutropenia
     Route: 042
     Dates: start: 20220111
  67. CALONAL FINE GRAN [Concomitant]
     Indication: Prophylaxis
     Route: 042
     Dates: start: 20220111
  68. PREDNISOLONE [Concomitant]
     Active Substance: PREDNISOLONE
     Indication: Pneumonitis
     Route: 048
     Dates: start: 20220208, end: 20220214
  69. PREDNISOLONE [Concomitant]
     Active Substance: PREDNISOLONE
     Indication: Pneumonitis
     Route: 048
     Dates: start: 20220215, end: 20220221
  70. PREDNISOLONE [Concomitant]
     Active Substance: PREDNISOLONE
     Indication: Pneumonitis
     Route: 048
     Dates: start: 20220215, end: 20220221
  71. PREDNISOLONE [Concomitant]
     Active Substance: PREDNISOLONE
     Indication: Pneumonitis
     Route: 048
     Dates: start: 20220222, end: 20220228
  72. PREDNISOLONE [Concomitant]
     Active Substance: PREDNISOLONE
     Indication: Pneumonitis
     Route: 048
     Dates: start: 20220301, end: 20220307
  73. PREDNISOLONE [Concomitant]
     Active Substance: PREDNISOLONE
     Indication: Pneumonitis
     Route: 048
     Dates: start: 20220301, end: 20220307
  74. PREDNISOLONE [Concomitant]
     Active Substance: PREDNISOLONE
     Indication: Pneumonitis
     Route: 048
     Dates: start: 20220308, end: 20220318
  75. PREDNISOLONE [Concomitant]
     Active Substance: PREDNISOLONE
     Indication: Pneumonitis
     Route: 048
     Dates: start: 20220319, end: 20220401
  76. PREDNISOLONE [Concomitant]
     Active Substance: PREDNISOLONE
     Indication: Pneumonitis
     Route: 048
     Dates: start: 20220402, end: 20220415
  77. PREDNISOLONE [Concomitant]
     Active Substance: PREDNISOLONE
     Indication: Pneumonitis
     Route: 048
     Dates: start: 20220416, end: 20220427
  78. FAMOTIDINE [Concomitant]
     Active Substance: FAMOTIDINE
     Indication: Premedication
     Route: 042
     Dates: start: 20220124

REACTIONS (3)
  - Oesophageal fistula [Recovered/Resolved]
  - Neutrophil count decreased [Recovered/Resolved]
  - Platelet count decreased [Recovered/Resolved]

NARRATIVE: CASE EVENT DATE: 20211118
